FAERS Safety Report 7205630-X (Version None)
Quarter: 2010Q4

REPORT INFORMATION
  Report Type: 
  Country: None (occurrence: None)
  Receive Date: 20101231
  Receipt Date: 20101222
  Transmission Date: 20110411
  Serious: Yes (Hospitalization)
  Sender: FDA-Public Use
  Company Number: JP-PFIZER INC-2010173154

PATIENT
  Age: 84 Year
  Sex: Female

DRUGS (13)
  1. LYRICA [Suspect]
     Dosage: 75 MG, 2X/DAY
     Route: 048
     Dates: start: 20101207
  2. VALSARTAN [Concomitant]
     Dosage: 40 MG/DAY
     Route: 048
  3. ALINAMIN [Concomitant]
     Dosage: 25 MG/DAY
     Route: 048
  4. OMEPRAZON [Concomitant]
     Dosage: 10 MG/DAY
     Route: 048
  5. BAYMYCARD [Concomitant]
     Dosage: 5 MG/DAY
     Route: 048
  6. WARFARIN [Concomitant]
     Dosage: 1 MG/DAY
     Route: 048
  7. LOXONIN [Concomitant]
     Dosage: 60 MG/DAY
     Route: 048
  8. KAKKON-TO [Concomitant]
     Dosage: 180 MG/DAY
     Route: 048
  9. ULCERLMIN [Concomitant]
     Dosage: 900 MG/DAY
     Route: 048
  10. CRAVIT [Concomitant]
     Dosage: 250 MG/DAY
     Route: 048
  11. CODEINE PHOSPHATE [Concomitant]
     Dosage: 20 MG/DAY
  12. MUCODYNE [Concomitant]
     Dosage: 7.5 G/DAY
  13. PL GRAN. [Concomitant]
     Dosage: 15 MG/DAY
     Route: 048

REACTIONS (2)
  - FALL [None]
  - HYPOAESTHESIA [None]
